FAERS Safety Report 7347247-2 (Version None)
Quarter: 2011Q1

REPORT INFORMATION
  Report Type: 
  Country: None (occurrence: None)
  Receive Date: 20110311
  Receipt Date: 20110307
  Transmission Date: 20110831
  Serious: Yes (Other)
  Sender: FDA-Public Use
  Company Number: US-PFIZER INC-2011048124

PATIENT
  Sex: Female

DRUGS (2)
  1. NORVASC [Suspect]
     Indication: HYPERTENSION
     Dosage: UNK
  2. CORTISONE [Concomitant]

REACTIONS (3)
  - GASTRITIS [None]
  - GASTRIC DILATATION [None]
  - BLOOD PRESSURE INADEQUATELY CONTROLLED [None]
